FAERS Safety Report 13439284 (Version 5)
Quarter: 2017Q2

REPORT INFORMATION
  Report Type: Report from Study
  Country: CN (occurrence: CN)
  Receive Date: 20170413
  Receipt Date: 20170607
  Transmission Date: 20170830
  Serious: Yes (Hospitalization)
  Sender: FDA-Public Use
  Company Number: CN-NAPPMUNDI-GBR-2017-0044624

PATIENT
  Age: 46 Year
  Sex: Female

DRUGS (13)
  1. NALTREXONE [Concomitant]
     Active Substance: NALTREXONE
     Indication: REVERSAL OF OPIATE ACTIVITY
     Dosage: 50 MG, SINGLE
     Route: 048
     Dates: start: 20170323, end: 20170323
  2. LACTULOSE. [Concomitant]
     Active Substance: LACTULOSE
     Dosage: 100 ML, UNK
     Route: 048
     Dates: start: 20170401, end: 20170401
  3. SUCRALFATE. [Concomitant]
     Active Substance: SUCRALFATE
     Indication: DYSPEPSIA
     Dosage: 1 G, BID
     Route: 048
     Dates: start: 20170401, end: 20170407
  4. OXYCODONE HYDROCHLORIDE. [Suspect]
     Active Substance: OXYCODONE HYDROCHLORIDE
     Indication: PAIN
     Dosage: 40 MG, SINGLE
     Route: 048
     Dates: start: 20170329, end: 20170329
  5. NALTREXONE [Concomitant]
     Active Substance: NALTREXONE
     Dosage: 50 MG, SINGLE
     Route: 048
     Dates: start: 20170321, end: 20170321
  6. OXYCODONE HYDROCHLORIDE. [Suspect]
     Active Substance: OXYCODONE HYDROCHLORIDE
     Dosage: 40 MG, SINGLE
     Route: 048
     Dates: start: 20170322, end: 20170322
  7. VITAMIN C [Concomitant]
     Active Substance: ASCORBIC ACID
     Indication: NUTRITIONAL SUPPLEMENTATION
     Dosage: 4.0 G, GTT
     Route: 042
     Dates: start: 20170330, end: 20170330
  8. KCL [Concomitant]
     Active Substance: POTASSIUM CHLORIDE
     Indication: ELECTROLYTE SUBSTITUTION THERAPY
     Dosage: 10%, 10 ML GGT
     Route: 042
     Dates: start: 20170330, end: 20170330
  9. BANLANGEN GRANULES [Concomitant]
     Indication: UPPER RESPIRATORY TRACT INFECTION
     Dosage: 30 G, UNK
     Route: 048
     Dates: start: 20170331, end: 20170331
  10. NALTREXONE [Concomitant]
     Active Substance: NALTREXONE
     Dosage: 50 MG, BID (50 MG AM + 50 MG PM)
     Route: 048
     Dates: start: 20170322, end: 20170322
  11. KCL [Concomitant]
     Active Substance: POTASSIUM CHLORIDE
     Indication: DYSPEPSIA
     Dosage: 10%, 10 ML GGT
     Route: 042
     Dates: start: 20170401, end: 20170401
  12. VITAMIN B6 [Concomitant]
     Active Substance: PYRIDOXINE HYDROCHLORIDE
     Indication: DYSPEPSIA
     Dosage: 0.2 G, GTT
     Route: 042
     Dates: start: 20170330, end: 20170330
  13. VITAMIN C [Concomitant]
     Active Substance: ASCORBIC ACID
     Indication: DYSPEPSIA
     Dosage: 2.0 G, GTT
     Route: 042
     Dates: start: 20170401, end: 20170401

REACTIONS (1)
  - Drug-induced liver injury [Recovered/Resolved]

NARRATIVE: CASE EVENT DATE: 20170401
